FAERS Safety Report 10214042 (Version 1)
Quarter: 2014Q2

REPORT INFORMATION
  Report Type: Spontaneous
  Country: ES (occurrence: None)
  Receive Date: 20140530
  Receipt Date: 20140530
  Transmission Date: 20141212
  Serious: Yes (Other)
  Sender: FDA-Public Use
  Company Number: FK201402027

PATIENT
  Age: 68 Year
  Sex: Female

DRUGS (13)
  1. LETROZOLE [Suspect]
     Indication: INVASIVE DUCTAL BREAST CARCINOMA
  2. ZUCLOPENTHIXOL [Suspect]
     Indication: SCHIZOPHRENIA, PARANOID TYPE
  3. QUETIAPINE (QUETIAPINE) [Concomitant]
  4. ALPRAZOLAM (ALPRAZOLAM) [Concomitant]
  5. METFORMIN (METFORMIN) [Concomitant]
  6. INSULIN GLARGINE (INSULIN GLARGINE) [Concomitant]
  7. TIMOLOL (TIMOLOL) (NONE) [Concomitant]
  8. BRINZOLAMIDE (BRINZOLAMIDE) [Concomitant]
  9. PRAVASTATIN (PRAVASTATIN) [Concomitant]
  10. ENALAPRIL+HYDROCHLOROTHIAZIDE (VASERETIC) [Concomitant]
  11. VITAMIN B12 (CYANOCOBALAMIN) [Concomitant]
  12. PARACETAMOL (PARACETAMOL) [Concomitant]
  13. SENNOSIDES (SENNOSIDE A+B) [Concomitant]

REACTIONS (7)
  - Drug interaction [None]
  - Extrapyramidal disorder [None]
  - Salivary hypersecretion [None]
  - Lethargy [None]
  - Sedation [None]
  - Dysphagia [None]
  - Dystonia [None]
